FAERS Safety Report 21553172 (Version 8)
Quarter: 2023Q2

REPORT INFORMATION
  Report Type: Spontaneous
  Country: CA (occurrence: CA)
  Receive Date: 20221104
  Receipt Date: 20230410
  Transmission Date: 20230721
  Serious: Yes (Hospitalization, Other)
  Sender: FDA-Public Use
  Company Number: CA-CELLTRION INC.-2022CA016859

PATIENT

DRUGS (7)
  1. INFLECTRA [Suspect]
     Active Substance: INFLIXIMAB-DYYB
     Indication: Crohn^s disease
     Dosage: 330 MG, W0, W2, W6, AND EVERY 8 WEEKS
     Route: 042
     Dates: start: 20220912
  2. INFLECTRA [Suspect]
     Active Substance: INFLIXIMAB-DYYB
     Dosage: 330 MG, W0, W2, W6, AND EVERY 8 WEEKS
     Route: 042
     Dates: start: 20220912, end: 20221221
  3. INFLECTRA [Suspect]
     Active Substance: INFLIXIMAB-DYYB
     Dosage: 330 MG, W0, W2, W6, AND EVERY 8 WEEKS
     Route: 042
     Dates: start: 20220926
  4. INFLECTRA [Suspect]
     Active Substance: INFLIXIMAB-DYYB
     Dosage: 330 MG, W0, W2, W6, AND EVERY 8 WEEKS
     Route: 042
     Dates: start: 20221024
  5. INFLECTRA [Suspect]
     Active Substance: INFLIXIMAB-DYYB
     Dosage: 330 MG, W0, W2, W6, AND EVERY 8 WEEKS
     Route: 042
     Dates: start: 20221221
  6. INFLECTRA [Suspect]
     Active Substance: INFLIXIMAB-DYYB
     Dosage: 400 MG EVERY 8 WEEK
     Route: 042
     Dates: start: 20221221, end: 20221221
  7. INFLECTRA [Suspect]
     Active Substance: INFLIXIMAB-DYYB
     Dosage: 400 MG (PRESCRIBED DOSE 300 MG) REINDUCTION W,0, W2, W6 AND Q8 WEEKS
     Route: 042
     Dates: start: 20230330

REACTIONS (7)
  - Intestinal perforation [Recovering/Resolving]
  - Peritonitis [Recovering/Resolving]
  - Ileocolectomy [Recovered/Resolved]
  - Off label use [Unknown]
  - Incorrect dose administered [Unknown]
  - Asthenia [Not Recovered/Not Resolved]
  - Condition aggravated [Recovering/Resolving]

NARRATIVE: CASE EVENT DATE: 20220926
